FAERS Safety Report 5333541-3 (Version None)
Quarter: 2007Q2

REPORT INFORMATION
  Report Type: 
  Country: None (occurrence: None)
  Receive Date: 20070524
  Receipt Date: 20070515
  Transmission Date: 20071010
  Serious: Yes (Hospitalization)
  Sender: FDA-Public Use
  Company Number: AU-JNJFOC-20070503687

PATIENT
  Sex: Female

DRUGS (7)
  1. RISPERDAL [Suspect]
     Indication: DRUG USE FOR UNKNOWN INDICATION
     Route: 048
  2. ALLOPURINOL [Concomitant]
  3. RALOXIFENE HCL [Concomitant]
  4. ASPIRIN [Concomitant]
  5. FRUSEMIDE [Concomitant]
  6. MELOXICAM [Concomitant]
  7. PERINDOPRIL [Concomitant]

REACTIONS (5)
  - DELIRIUM [None]
  - FALL [None]
  - MYOCLONUS [None]
  - ORTHOSTATIC HYPOTENSION [None]
  - WRIST FRACTURE [None]
